FAERS Safety Report 9140564 (Version 1)
Quarter: 2013Q1

REPORT INFORMATION
  Report Type: Report from Study
  Country: RS (occurrence: RS)
  Receive Date: 20130305
  Receipt Date: 20130305
  Transmission Date: 20140127
  Serious: Yes (Other)
  Sender: FDA-Public Use
  Company Number: RS-ROCHE-1193133

PATIENT
  Sex: 0

DRUGS (4)
  1. PEG-INTERFERON ALFA 2A [Suspect]
     Indication: CHRONIC HEPATITIS C
     Route: 058
  2. RIBAVIRIN [Suspect]
     Indication: CHRONIC HEPATITIS C
     Route: 048
  3. RIBAVIRIN [Suspect]
     Route: 048
  4. RIBAVIRIN [Suspect]
     Route: 048

REACTIONS (19)
  - Thyroid disorder [Unknown]
  - Autoantibody test [Unknown]
  - Granulocytopenia [Unknown]
  - Depression [Unknown]
  - Influenza like illness [Unknown]
  - Fatigue [Unknown]
  - Weight decreased [Unknown]
  - Decreased appetite [Unknown]
  - Anaemia [Unknown]
  - Alopecia [Unknown]
  - Rash [Unknown]
  - Pruritus [Unknown]
  - Headache [Unknown]
  - Irritability [Unknown]
  - Insomnia [Unknown]
  - Cough [Unknown]
  - Gastrointestinal disorder [Unknown]
  - Injection site erythema [Unknown]
  - Thrombocytopenia [Unknown]
